FAERS Safety Report 5082307-0 (Version None)
Quarter: 2006Q3

REPORT INFORMATION
  Report Type: 
  Country: None (occurrence: None)
  Receive Date: 20060814
  Receipt Date: 20060727
  Transmission Date: 20061208
  Serious: Yes (Hospitalization)
  Sender: FDA-Public Use
  Company Number: CTI_0904_2006

PATIENT
  Sex: Male

DRUGS (1)
  1. ZYFLO [Suspect]
     Indication: ASTHMA
     Dosage: DF
     Dates: end: 20060727

REACTIONS (1)
  - TACHYCARDIA [None]
